FAERS Safety Report 24563175 (Version 1)
Quarter: 2024Q4

REPORT INFORMATION
  Report Type: Spontaneous
  Country: JP (occurrence: JP)
  Receive Date: 20241030
  Receipt Date: 20241030
  Transmission Date: 20250114
  Serious: Yes (Death, Other)
  Sender: CHEPLAPHARM
  Company Number: JP-CLGN-JP-CLI-2024-010588

PATIENT
  Age: 79 Year
  Sex: Male

DRUGS (1)
  1. HYDROXYUREA [Suspect]
     Active Substance: HYDROXYUREA
     Indication: Chronic myelomonocytic leukaemia

REACTIONS (5)
  - Respiratory failure [Fatal]
  - Hypoxia [Unknown]
  - Pneumonia [Unknown]
  - Pulmonary oedema [Unknown]
  - Nephropathy [Unknown]
